FAERS Safety Report 9115459 (Version 3)
Quarter: 2014Q1

REPORT INFORMATION
  Report Type: Spontaneous
  Country: US (occurrence: None)
  Receive Date: 20130128
  Receipt Date: 20140129
  Transmission Date: 20141002
  Serious: Yes (Other)
  Sender: FDA-Public Use
  Company Number: US-2013-10087

PATIENT
  Age: 48 Year
  Sex: Male

DRUGS (1)
  1. OPC-41061 [Suspect]
     Indication: CONGENITAL CYSTIC KIDNEY DISEASE
     Dosage: 120 MG MILLIGRAM(S), DAILY DOSE, ORAL?07/10/2010  TO  ONGOING?
     Route: 048
     Dates: start: 20100710

REACTIONS (1)
  - Retinal detachment [None]
